FAERS Safety Report 6149162-9 (Version None)
Quarter: 2009Q2

REPORT INFORMATION
  Report Type: 
  Country: None (occurrence: None)
  Receive Date: 20090407
  Receipt Date: 20090327
  Transmission Date: 20091009
  Serious: Yes (Death, Other)
  Sender: FDA-Public Use
  Company Number: CLOF-1000486

PATIENT

DRUGS (6)
  1. CLOLAR [Suspect]
     Indication: LEUKAEMIA
     Dosage: QD X 4, INTRAVENOUS
     Route: 042
  2. BUSULFAN (BUSULFAN) [Suspect]
     Indication: LEUKAEMIA
     Dosage: QD X 4, INTRAVENOUS
     Route: 042
  3. FLUDARABINE PHOSPHATE [Suspect]
     Indication: LEUKAEMIA
     Dosage: QD X 4, INTRAVENOUS
     Route: 042
  4. THYMOGLOBULIN [Concomitant]
  5. TACROLIMUS [Concomitant]
  6. METHOTREXATE SODIUM [Concomitant]

REACTIONS (5)
  - CARDIAC FAILURE CONGESTIVE [None]
  - DISEASE PROGRESSION [None]
  - HEPATOTOXICITY [None]
  - MUCOSAL INFLAMMATION [None]
  - TRANSPLANT [None]
